FAERS Safety Report 6599161-8 (Version None)
Quarter: 2010Q1

REPORT INFORMATION
  Report Type: 
  Country: None (occurrence: None)
  Receive Date: 20100224
  Receipt Date: 20100219
  Transmission Date: 20100710
  Serious: Yes (Hospitalization)
  Sender: FDA-Public Use
  Company Number: US-SANOFI-AVENTIS-2010SA003022

PATIENT
  Age: 76 Year
  Sex: Female

DRUGS (1)
  1. LOVENOX [Suspect]
     Indication: STENT PLACEMENT
     Route: 065
     Dates: start: 20091101, end: 20100101

REACTIONS (6)
  - ABDOMINAL PAIN UPPER [None]
  - CHILLS [None]
  - ESCHERICHIA INFECTION [None]
  - NAUSEA [None]
  - URINARY TRACT INFECTION [None]
  - VOMITING [None]
